FAERS Safety Report 4679847-2 (Version None)
Quarter: 2005Q2

REPORT INFORMATION
  Report Type: 
  Country: None (occurrence: None)
  Receive Date: 20050602
  Receipt Date: 20050204
  Transmission Date: 20051028
  Serious: No
  Sender: FDA-Public Use
  Company Number: US-GLAXOSMITHKLINE-A0543981A

PATIENT
  Age: 7 Year
  Sex: Male

DRUGS (1)
  1. AUGMENTIN XR [Suspect]
     Indication: SINUSITIS
     Dosage: 500MG PER DAY
     Route: 048
     Dates: start: 20050126, end: 20050203

REACTIONS (2)
  - ABDOMINAL PAIN UPPER [None]
  - NAUSEA [None]
